FAERS Safety Report 8758960 (Version 3)
Quarter: 2013Q4

REPORT INFORMATION
  Report Type: Spontaneous
  Country: US (occurrence: US)
  Receive Date: 20120829
  Receipt Date: 20131031
  Transmission Date: 20140711
  Serious: No
  Sender: FDA-Public Use
  Company Number: US-009507513-2012SP033702

PATIENT
  Age: 7 Year
  Sex: Female

DRUGS (3)
  1. ASMANEX [Suspect]
     Indication: ASTHMA
     Dosage: 1 DF, QD
     Dates: start: 2010
  2. SINGULAIR [Concomitant]
     Indication: PRODUCT USED FOR UNKNOWN INDICATION
  3. ZYRTEC [Concomitant]
     Indication: PRODUCT USED FOR UNKNOWN INDICATION

REACTIONS (1)
  - Asthma [Recovered/Resolved]
